FAERS Safety Report 21627430 (Version 1)
Quarter: 2022Q4

REPORT INFORMATION
  Report Type: Spontaneous
  Country: IL (occurrence: IL)
  Receive Date: 20221122
  Receipt Date: 20221122
  Transmission Date: 20230112
  Serious: Yes (Hospitalization)
  Sender: FDA-Public Use
  Company Number: IL-ABBVIE-22P-082-4531054-00

PATIENT
  Age: 70 Year
  Sex: Male

DRUGS (8)
  1. PEMBROLIZUMAB [Suspect]
     Active Substance: PEMBROLIZUMAB
     Indication: Neoplasm
     Dosage: 200 MILLIGRAM, Q3W
     Route: 042
     Dates: start: 20220821
  2. DUTASTERIDE\TAMSULOSIN [Concomitant]
     Active Substance: DUTASTERIDE\TAMSULOSIN
     Indication: Benign prostatic hyperplasia
     Dosage: 1 DOSAGE FORM, QD
     Dates: start: 202001
  3. DIPYRONE [Concomitant]
     Active Substance: DIPYRONE
     Indication: Back pain
     Dosage: 500 MILLIGRAM, AS NECESSARY
     Dates: start: 20050608
  4. ACETAMINOPHEN [Concomitant]
     Active Substance: ACETAMINOPHEN
     Indication: Back pain
     Dosage: 500 MILLIGRAM, AS NECESSARY
     Dates: start: 20050608
  5. PROCTOFOAM [Concomitant]
     Active Substance: PRAMOXINE HYDROCHLORIDE
     Indication: Proctalgia
     Dosage: CONCENTRATION 1%,, AS NECESSARY
     Dates: start: 20200505
  6. AFLUMYCIN [Concomitant]
     Indication: Proctalgia
     Dosage: 20 GRAM, AS NECESSARY
     Dates: start: 20200505
  7. PREGABALIN [Concomitant]
     Active Substance: PREGABALIN
     Indication: Proctalgia
     Dosage: 150 MILLIGRAM, QD
     Dates: start: 20220831
  8. ZALDIAR [Concomitant]
     Active Substance: ACETAMINOPHEN\TRAMADOL HYDROCHLORIDE
     Indication: Proctalgia
     Dosage: 37.5 MILLIGRAM, AS NECESSARY
     Dates: start: 20220828

REACTIONS (1)
  - Supraventricular tachycardia [Recovered/Resolved]

NARRATIVE: CASE EVENT DATE: 20220906
